FAERS Safety Report 10228150 (Version 1)
Quarter: 2014Q2

REPORT INFORMATION
  Report Type: Spontaneous
  Country: US (occurrence: US)
  Receive Date: 20140610
  Receipt Date: 20140610
  Transmission Date: 20141212
  Serious: No
  Sender: FDA-Public Use
  Company Number: US-PFIZER INC-2014155408

PATIENT
  Sex: Male

DRUGS (3)
  1. LYRICA [Suspect]
     Indication: SCIATICA
     Dosage: 100 MG, UNK
  2. LYRICA [Suspect]
     Indication: NERVE INJURY
     Dosage: 400 MG, UNK
  3. LYRICA [Suspect]
     Indication: INTERVERTEBRAL DISC PROTRUSION

REACTIONS (3)
  - Drug ineffective [Unknown]
  - Somnolence [Unknown]
  - Abdominal discomfort [Unknown]
